FAERS Safety Report 10072170 (Version 1)
Quarter: 2014Q2

REPORT INFORMATION
  Report Type: Spontaneous
  Country: US (occurrence: None)
  Receive Date: 20140410
  Receipt Date: 20140410
  Transmission Date: 20141212
  Serious: Yes (Disabling)
  Sender: FDA-Public Use
  Company Number: None

PATIENT
  Age: 43 Year
  Sex: Male
  Weight: 74.39 kg

DRUGS (2)
  1. NASACORT [Suspect]
     Indication: UPPER-AIRWAY COUGH SYNDROME
     Dates: start: 20140312, end: 20140322
  2. ZYRTEC [Suspect]
     Indication: UPPER-AIRWAY COUGH SYNDROME
     Dates: start: 20140312, end: 20140324

REACTIONS (4)
  - Anosmia [None]
  - Decreased appetite [None]
  - Sensory loss [None]
  - Product substitution issue [None]
